FAERS Safety Report 7156029-6 (Version None)
Quarter: 2010Q4

REPORT INFORMATION
  Report Type: 
  Country: None (occurrence: None)
  Receive Date: 20101214
  Receipt Date: 20101206
  Transmission Date: 20110411
  Serious: Yes (Hospitalization)
  Sender: FDA-Public Use
  Company Number: NO-SANOFI-AVENTIS-2010SA073813

PATIENT
  Age: 74 Year
  Sex: Male

DRUGS (2)
  1. MULTAQ [Suspect]
     Route: 048
     Dates: start: 20100608
  2. CORDARONE [Suspect]
     Route: 065
     Dates: end: 20100525

REACTIONS (2)
  - HYPERTHYROIDISM [None]
  - RASH [None]
